FAERS Safety Report 21901849 (Version 1)
Quarter: 2023Q1

REPORT INFORMATION
  Report Type: Spontaneous
  Country: US (occurrence: US)
  Receive Date: 20230124
  Receipt Date: 20230124
  Transmission Date: 20230417
  Serious: Yes (Disabling)
  Sender: FDA-Public Use
  Company Number: US-SANOFI-01453918

PATIENT
  Sex: Female

DRUGS (3)
  1. TOUJEO [Suspect]
     Active Substance: INSULIN GLARGINE
     Indication: Type 2 diabetes mellitus
     Dosage: 100 IU, QD
  2. NOVOLOG [Concomitant]
     Active Substance: INSULIN ASPART
     Dosage: 15 UNITS BEFORE MEALS
  3. NOVOLOG [Concomitant]
     Active Substance: INSULIN ASPART
     Dosage: TOOK 20 UNITS BEFORE BED

REACTIONS (2)
  - Wheelchair user [Not Recovered/Not Resolved]
  - Blood glucose increased [Recovering/Resolving]
